FAERS Safety Report 23633314 (Version 1)
Quarter: 2024Q1

REPORT INFORMATION
  Report Type: Spontaneous
  Country: KE (occurrence: None)
  Receive Date: 20240314
  Receipt Date: 20240314
  Transmission Date: 20240409
  Serious: Yes (Hospitalization)
  Sender: FDA-Public Use
  Company Number: KE-ROCHE-3523616

PATIENT
  Age: 16 Year
  Sex: Female

DRUGS (1)
  1. MABTHERA [Suspect]
     Active Substance: RITUXIMAB
     Indication: Rheumatoid arthritis
     Route: 041

REACTIONS (5)
  - Pruritus [Unknown]
  - Dyspnoea [Unknown]
  - Dry mouth [Unknown]
  - Diarrhoea [Unknown]
  - Swelling face [Unknown]
